FAERS Safety Report 8171350-0 (Version None)
Quarter: 2012Q1

REPORT INFORMATION
  Report Type: 
  Country: None (occurrence: None)
  Receive Date: 20120104
  Receipt Date: 20111129
  Transmission Date: 20120608
  Serious: No
  Sender: FDA-Public Use
  Company Number: 2011HGS-002585

PATIENT
  Age: 74 Year
  Sex: Female
  Weight: 72.5755 kg

DRUGS (20)
  1. METHOTREXATE SODIUM [Concomitant]
  2. PRIMIDONE [Concomitant]
  3. MELOXICAM [Concomitant]
  4. CHLORZOXAZONE [Concomitant]
  5. MVI (MVI) (VITAMIN NOS) [Concomitant]
  6. HYDROXYCHLOROQUINE SULFATE [Concomitant]
  7. RECLAST [Concomitant]
  8. ENABLEX (URINARY ANTISPASMODISC) (DARIFENACIN) [Concomitant]
  9. NEXIUM [Concomitant]
  10. FENOFIBRATE [Concomitant]
  11. LISINOPRIL [Concomitant]
  12. FISH OIL (FISH OIL) [Concomitant]
  13. STEROID (STEROID) [Concomitant]
  14. LEXAPRO [Concomitant]
  15. ATENOLOL [Concomitant]
  16. SIMVASTATIN [Concomitant]
  17. ASPIRIN [Concomitant]
  18. BENLYSTA [Suspect]
     Indication: SYSTEMIC LUPUS ERYTHEMATOSUS
     Dosage: 1 IN 28 D, INTRAVENOUS DRIP
     Route: 041
     Dates: start: 20110725
  19. FOLIC ACID [Concomitant]
  20. ACETAMINOPHEN [Concomitant]

REACTIONS (12)
  - ERYTHEMA [None]
  - NAUSEA [None]
  - ABDOMINAL DISCOMFORT [None]
  - HEADACHE [None]
  - PRURITUS [None]
  - PARAESTHESIA [None]
  - FATIGUE [None]
  - RHINORRHOEA [None]
  - BURNING SENSATION [None]
  - WEIGHT DECREASED [None]
  - DIARRHOEA [None]
  - FLANK PAIN [None]
